FAERS Safety Report 5608671-9 (Version None)
Quarter: 2008Q1

REPORT INFORMATION
  Report Type: 
  Country: None (occurrence: None)
  Receive Date: 20080131
  Receipt Date: 20080118
  Transmission Date: 20080703
  Serious: Yes (Other)
  Sender: FDA-Public Use
  Company Number: US-PFIZER INC-2006154043

PATIENT
  Sex: Female

DRUGS (6)
  1. DILANTIN [Suspect]
  2. SENNA [Concomitant]
     Route: 048
     Dates: start: 20070313
  3. LEVOTHYROXINE SODIUM [Concomitant]
     Route: 048
     Dates: start: 20070313
  4. ESOMEPRAZOLE MAGNESIUM [Concomitant]
     Dates: start: 20070313
  5. DOCUSATE SODIUM [Concomitant]
     Route: 048
     Dates: start: 20070313
  6. HEPARIN [Concomitant]
     Route: 058
     Dates: start: 20070313

REACTIONS (10)
  - ABDOMINAL PAIN [None]
  - ANAEMIA [None]
  - DEEP VEIN THROMBOSIS [None]
  - FATIGUE [None]
  - HEPATIC ENZYME ABNORMAL [None]
  - HYPERGLYCAEMIA [None]
  - HYPERSENSITIVITY [None]
  - HYPONATRAEMIA [None]
  - HYPOTHYROIDISM [None]
  - OCULAR HYPERAEMIA [None]
